FAERS Safety Report 7077188-X (Version None)
Quarter: 2010Q4

REPORT INFORMATION
  Report Type: 
  Country: None (occurrence: None)
  Receive Date: 20101101
  Receipt Date: 20101021
  Transmission Date: 20110411
  Serious: Yes (Other)
  Sender: FDA-Public Use
  Company Number: B0681957A

PATIENT
  Age: 57 Year
  Sex: Male

DRUGS (2)
  1. HEPTODIN [Suspect]
     Indication: HEPATITIS B
     Dosage: .1G PER DAY
     Route: 048
     Dates: start: 20091101
  2. TRADITIONAL CHINESE MEDICINE [Concomitant]
     Indication: PRODUCT USED FOR UNKNOWN INDICATION
     Route: 065

REACTIONS (5)
  - ALANINE AMINOTRANSFERASE INCREASED [None]
  - BILIRUBIN CONJUGATED INCREASED [None]
  - BLOOD BILIRUBIN INCREASED [None]
  - DECREASED APPETITE [None]
  - ERECTILE DYSFUNCTION [None]
